FAERS Safety Report 4450539-8 (Version None)
Quarter: 2004Q3

REPORT INFORMATION
  Report Type: 
  Country: None (occurrence: None)
  Receive Date: 20040913
  Receipt Date: 20040624
  Transmission Date: 20050211
  Serious: No
  Sender: FDA-Public Use
  Company Number: 2004-BP-05099BP

PATIENT
  Age: 72 Year
  Sex: Male

DRUGS (15)
  1. SPIRIVA [Suspect]
     Indication: CHRONIC OBSTRUCTIVE AIRWAYS DISEASE
     Dosage: 18 MCG (18 MCG, 1 IN 1 D), IH
     Route: 055
     Dates: start: 20040601
  2. VIAGRA [Concomitant]
  3. ADVAIR (SERETIDE MITE) [Concomitant]
  4. PROTONIX [Concomitant]
  5. ETODOLAC [Concomitant]
  6. DILTIAZEM [Concomitant]
  7. SIMVASTATIN [Concomitant]
  8. LORAZEPAM [Concomitant]
  9. ASPIRIN [Concomitant]
  10. SAW PALMETTO (SERENOA REPENS) [Concomitant]
  11. VITAMIN E [Concomitant]
  12. VITAMIN C (ASCORBIC ACID) [Concomitant]
  13. SELENIUM 100 [Concomitant]
  14. BETA CAROTIN [Concomitant]
  15. BETA SISTEROL [Concomitant]

REACTIONS (1)
  - ERECTILE DYSFUNCTION [None]
